FAERS Safety Report 18123457 (Version 1)
Quarter: 2020Q3

REPORT INFORMATION
  Report Type: Spontaneous
  Country: US (occurrence: US)
  Receive Date: 20200806
  Receipt Date: 20200806
  Transmission Date: 20201103
  Serious: Yes (Hospitalization)
  Sender: FDA-Public Use
  Company Number: None

PATIENT
  Age: 77 Year
  Sex: Female

DRUGS (1)
  1. ACTEMRA [Suspect]
     Active Substance: TOCILIZUMAB
     Indication: RHEUMATOID ARTHRITIS
     Route: 058
     Dates: start: 20200123

REACTIONS (5)
  - Limb injury [None]
  - Immobile [None]
  - Pain in extremity [None]
  - Fall [None]
  - Mouth injury [None]

NARRATIVE: CASE EVENT DATE: 20200629
